FAERS Safety Report 24409179 (Version 1)
Quarter: 2024Q4

REPORT INFORMATION
  Report Type: Spontaneous
  Country: US (occurrence: US)
  Receive Date: 20241008
  Receipt Date: 20241008
  Transmission Date: 20250115
  Serious: Yes (Other)
  Sender: JOHNSON AND JOHNSON
  Company Number: US-JNJFOC-20241001231

PATIENT
  Sex: Female

DRUGS (1)
  1. NEUTROGENA RAPID WRINKLE REPAIR MOISTURIZER SPF 30 [Suspect]
     Active Substance: AVOBENZONE\HOMOSALATE\OCTISALATE\OCTOCRYLENE
     Indication: Dry skin prophylaxis
     Dosage: THE SIZE OF A PEA
     Route: 061
     Dates: start: 202408, end: 2024

REACTIONS (1)
  - Glaucoma [Unknown]

NARRATIVE: CASE EVENT DATE: 20240801
